FAERS Safety Report 8317848-3 (Version None)
Quarter: 2012Q2

REPORT INFORMATION
  Report Type: 
  Country: None (occurrence: None)
  Receive Date: 20120427
  Receipt Date: 20120420
  Transmission Date: 20120825
  Serious: Yes (Hospitalization)
  Sender: FDA-Public Use
  Company Number: US-BAYER-2012-017028

PATIENT
  Age: 50 Year
  Sex: Female
  Weight: 81.179 kg

DRUGS (15)
  1. FIORICET [Concomitant]
     Dosage: UNK
     Route: 048
  2. OMACOR [Concomitant]
     Dosage: 1 G, UNK
     Route: 048
  3. FLECTOR TOPICAL [Concomitant]
     Indication: ARTHRALGIA
     Dosage: UNK
     Route: 061
     Dates: start: 20100126
  4. PREVACID [Concomitant]
     Dosage: 30 MG, UNK
     Route: 048
  5. YAZ [Suspect]
     Indication: CONTRACEPTION
     Dosage: UNK
     Dates: start: 20070101, end: 20110601
  6. MOTRIN [Concomitant]
     Dosage: UNK
     Dates: start: 20100601, end: 20100605
  7. WARFARIN SODIUM [Concomitant]
  8. METHOTREXATE [Concomitant]
     Indication: RHEUMATOID ARTHRITIS
     Dosage: UNK
     Route: 048
     Dates: start: 20040101, end: 20100101
  9. REMICADE [Concomitant]
     Dosage: UNK
  10. VITAMIN D [Concomitant]
     Indication: RHEUMATOID ARTHRITIS
     Dosage: UNK
     Route: 048
     Dates: start: 20100101, end: 20120101
  11. FLEXERIL [Concomitant]
     Dosage: 10 MG, UNK
     Route: 048
  12. IBUPROFEN [Concomitant]
     Dosage: 800 MG, UNK
     Route: 048
  13. REMACAID [Concomitant]
     Dosage: 100 MG, UNK
     Route: 042
  14. VITAMIN C SUPPLEMENT [Concomitant]
     Dosage: UNK
     Route: 048
  15. KLONOPIN [Concomitant]
     Dosage: 2 MG, UNK
     Route: 048

REACTIONS (2)
  - MENTAL DISORDER [None]
  - DEEP VEIN THROMBOSIS [None]
